FAERS Safety Report 18278336 (Version 1)
Quarter: 2020Q3

REPORT INFORMATION
  Report Type: Other
  Country: CN (occurrence: CN)
  Receive Date: 20200917
  Receipt Date: 20200917
  Transmission Date: 20201103
  Serious: Yes (Other)
  Sender: FDA-Public Use
  Company Number: CN-ROCHE-2676096

PATIENT

DRUGS (2)
  1. OXALIPLATIN. [Suspect]
     Active Substance: OXALIPLATIN
     Indication: GASTRIC CANCER
     Dosage: ON DAY 1
     Route: 042
  2. CAPECITABINE. [Suspect]
     Active Substance: CAPECITABINE
     Indication: GASTRIC CANCER
     Dosage: POST MEAL ON THE 1ST TO THE 14TH DAY
     Route: 048

REACTIONS (12)
  - Aspartate aminotransferase abnormal [Unknown]
  - Blood bilirubin increased [Unknown]
  - Nausea [Unknown]
  - Thrombocytopenia [Unknown]
  - Alanine aminotransferase abnormal [Unknown]
  - Blood creatinine increased [Unknown]
  - Constipation [Unknown]
  - Neutropenia [Unknown]
  - Palmar-plantar erythrodysaesthesia syndrome [Unknown]
  - Anaemia [Unknown]
  - Leukopenia [Unknown]
  - Vomiting [Unknown]
